FAERS Safety Report 9030297 (Version 1)
Quarter: 2013Q1

REPORT INFORMATION
  Report Type: Spontaneous
  Country: FR (occurrence: FR)
  Receive Date: 20130122
  Receipt Date: 20130122
  Transmission Date: 20140127
  Serious: Yes (Hospitalization)
  Sender: FDA-Public Use
  Company Number: FR-PFIZER INC-2013020994

PATIENT
  Age: 69 Year
  Sex: Male

DRUGS (12)
  1. LYRICA [Suspect]
     Indication: INTERVERTEBRAL DISC PROTRUSION
     Dosage: UNK
     Dates: start: 2008
  2. LYRICA [Suspect]
     Indication: OSTEOARTHRITIS
     Dosage: 150 MG SIX TIMES DAILY
     Route: 048
     Dates: start: 2012
  3. SIMVASTATIN [Concomitant]
  4. PANTOPRAZOLE [Concomitant]
  5. OMIX LP [Concomitant]
  6. EUPHYLLINE [Concomitant]
  7. COVERAM [Concomitant]
  8. NAFTIDROFURYL [Concomitant]
  9. OXYCONTIN [Concomitant]
  10. PLAVIX [Concomitant]
  11. VENTOLINE [Concomitant]
  12. DUPHALAC [Concomitant]

REACTIONS (5)
  - Overdose [Unknown]
  - General physical health deterioration [Unknown]
  - Dyspnoea [Unknown]
  - Bradycardia [Unknown]
  - Atrioventricular block second degree [Unknown]
